FAERS Safety Report 19065254 (Version 1)
Quarter: 2021Q1

REPORT INFORMATION
  Report Type: Spontaneous
  Country: SK (occurrence: SK)
  Receive Date: 20210327
  Receipt Date: 20210327
  Transmission Date: 20210420
  Serious: Yes (Death, Other)
  Sender: FDA-Public Use
  Company Number: SK-LUPIN PHARMACEUTICALS INC.-2021-03877

PATIENT
  Age: 68 Year
  Sex: Male

DRUGS (28)
  1. KLACID [CLARITHROMYCIN] [Suspect]
     Active Substance: CLARITHROMYCIN
     Indication: COVID-19
     Dosage: UNK
     Route: 065
  2. FRAXIPARINE [Concomitant]
     Active Substance: NADROPARIN CALCIUM
     Indication: HYPERCOAGULATION
     Dosage: UNK
     Route: 065
  3. VITAMIN B1 [Concomitant]
     Active Substance: THIAMINE HYDROCHLORIDE
     Indication: PRODUCT USED FOR UNKNOWN INDICATION
     Dosage: UNK
     Route: 065
  4. LAGOSA [Concomitant]
     Active Substance: DIETARY SUPPLEMENT\HERBALS\MILK THISTLE
     Indication: PRODUCT USED FOR UNKNOWN INDICATION
     Dosage: UNK
     Route: 065
  5. SOLU?MEDROL [Concomitant]
     Active Substance: METHYLPREDNISOLONE SODIUM SUCCINATE
     Indication: PRODUCT USED FOR UNKNOWN INDICATION
     Dosage: UNK
     Route: 065
  6. NORADRENALIN [NOREPINEPHRINE] [Concomitant]
     Active Substance: NOREPINEPHRINE
     Indication: CLOSTRIDIAL INFECTION
     Dosage: UNK
     Route: 065
  7. TIAPRIDAL [Concomitant]
     Active Substance: TIAPRIDE HYDROCHLORIDE
     Indication: PRODUCT USED FOR UNKNOWN INDICATION
     Dosage: UNK
     Route: 065
  8. DOBUTAMINE [Concomitant]
     Active Substance: DOBUTAMINE HYDROCHLORIDE
     Indication: CLOSTRIDIAL INFECTION
     Dosage: UNK
     Route: 065
  9. CEFEPIME [Concomitant]
     Active Substance: CEFEPIME HYDROCHLORIDE
     Indication: PSEUDOMONAS INFECTION
     Dosage: UNK
     Route: 065
     Dates: start: 20201114
  10. ENTIZOL [Concomitant]
     Active Substance: METRONIDAZOLE
     Indication: CLOSTRIDIUM DIFFICILE INFECTION
     Dosage: UNK
     Route: 065
     Dates: start: 20201112
  11. REMDESIVIR. [Suspect]
     Active Substance: REMDESIVIR
     Indication: COVID-19
     Dosage: UNK
     Route: 065
  12. QUAMATEL [Concomitant]
     Active Substance: FAMOTIDINE
     Indication: PRODUCT USED FOR UNKNOWN INDICATION
     Dosage: UNK
     Route: 065
  13. PARACETAMOL [Concomitant]
     Active Substance: ACETAMINOPHEN
     Indication: PRODUCT USED FOR UNKNOWN INDICATION
     Dosage: UNK
     Route: 065
  14. ZINC. [Concomitant]
     Active Substance: ZINC
     Indication: PRODUCT USED FOR UNKNOWN INDICATION
     Dosage: UNK
     Route: 065
  15. HEPARIN [Concomitant]
     Active Substance: HEPARIN SODIUM
     Indication: HYPERCOAGULATION
     Dosage: UNK
     Route: 065
  16. COLISTIN [Concomitant]
     Active Substance: COLISTIN
     Indication: PSEUDOMONAS INFECTION
     Dosage: UNK
     Route: 065
     Dates: start: 20201114
  17. ATORVASTATIN [Concomitant]
     Active Substance: ATORVASTATIN
     Indication: PRODUCT USED FOR UNKNOWN INDICATION
     Dosage: UNK
     Route: 065
  18. CEFTRIAXONE. [Suspect]
     Active Substance: CEFTRIAXONE
     Indication: COVID-19
     Dosage: UNK
     Route: 065
  19. ISOPRINOSINE [Suspect]
     Active Substance: INOSINE PRANOBEX
     Indication: COVID-19
     Dosage: UNK
     Route: 065
  20. VIGANTOL [COLECALCIFEROL] [Concomitant]
     Active Substance: CHOLECALCIFEROL
     Indication: PRODUCT USED FOR UNKNOWN INDICATION
     Dosage: UNK
     Route: 065
  21. VORICONAZOLE. [Concomitant]
     Active Substance: VORICONAZOLE
     Indication: PRODUCT USED FOR UNKNOWN INDICATION
     Dosage: UNK
     Route: 065
  22. TRAMADOL. [Concomitant]
     Active Substance: TRAMADOL
     Indication: PRODUCT USED FOR UNKNOWN INDICATION
     Dosage: UNK
     Route: 065
  23. PIPERACILLIN/TAZOBACTAM [Concomitant]
     Active Substance: PIPERACILLIN SODIUM\TAZOBACTAM SODIUM
     Indication: PRODUCT USED FOR UNKNOWN INDICATION
     Dosage: UNK
     Route: 065
  24. VITAMIN C ACID [Concomitant]
     Active Substance: ASCORBIC ACID
     Indication: PRODUCT USED FOR UNKNOWN INDICATION
     Dosage: UNK
     Route: 065
  25. VANCOMYCIN [Concomitant]
     Active Substance: VANCOMYCIN
     Indication: PSEUDOMONAS INFECTION
     Dosage: UNK
     Route: 065
     Dates: start: 20201116
  26. EMBESIN [Concomitant]
     Indication: CLOSTRIDIAL INFECTION
     Dosage: UNK
     Route: 065
  27. MEROPENEM. [Concomitant]
     Active Substance: MEROPENEM
     Indication: PSEUDOMONAS INFECTION
     Dosage: UNK
     Route: 065
     Dates: start: 20201116
  28. LINEZOLID. [Concomitant]
     Active Substance: LINEZOLID
     Indication: PRODUCT USED FOR UNKNOWN INDICATION
     Dosage: UNK
     Route: 065

REACTIONS (1)
  - Off label use [Unknown]
